FAERS Safety Report 23438020 (Version 1)
Quarter: 2024Q1

REPORT INFORMATION
  Report Type: Spontaneous
  Country: US (occurrence: US)
  Receive Date: 20240124
  Receipt Date: 20240124
  Transmission Date: 20240410
  Serious: No
  Sender: FDA-Public Use
  Company Number: US-KARYOPHARM-2024KPT000042

PATIENT

DRUGS (2)
  1. XPOVIO [Suspect]
     Active Substance: SELINEXOR
     Indication: Plasma cell myeloma
     Dosage: 40 MG, WEEKLY
     Route: 048
     Dates: start: 20230207
  2. POMALYST [Concomitant]
     Active Substance: POMALIDOMIDE
     Dosage: 4 MG
     Dates: start: 20230201

REACTIONS (1)
  - Neutrophil count decreased [Unknown]
